FAERS Safety Report 15966950 (Version 1)
Quarter: 2019Q1

REPORT INFORMATION
  Report Type: Spontaneous
  Country: IT (occurrence: IT)
  Receive Date: 20190215
  Receipt Date: 20190215
  Transmission Date: 20190418
  Serious: Yes (Life-Threatening)
  Sender: FDA-Public Use
  Company Number: IT-TEVA-2019-IT-1011417

PATIENT
  Age: 13 Year
  Sex: Male
  Weight: 43 kg

DRUGS (3)
  1. METOTRESSATO TEVA 25 MG/ML SOLUZIONE INIETTABILE [Suspect]
     Active Substance: METHOTREXATE SODIUM
     Indication: B-CELL LYMPHOMA
     Dosage: 500 NANOGRAM DAILY;
     Route: 042
     Dates: start: 20181122, end: 20181123
  2. VINCRISTINA TEVA ITALIA 1 MG/ML SOLUZIONE INIETTABILE [Concomitant]
     Active Substance: VINCRISTINE SULFATE
     Indication: B-CELL LYMPHOMA
  3. HOLOXAN 1 G POLVERE PER SOLUZIONE PER INFUSIONE [Concomitant]
     Indication: B-CELL LYMPHOMA
     Route: 042

REACTIONS (3)
  - Posterior reversible encephalopathy syndrome [Recovered/Resolved with Sequelae]
  - Acute kidney injury [Recovered/Resolved with Sequelae]
  - Toxicity to various agents [Recovered/Resolved with Sequelae]

NARRATIVE: CASE EVENT DATE: 20181123
